FAERS Safety Report 15645370 (Version 2)
Quarter: 2019Q1

REPORT INFORMATION
  Report Type: Report from Study
  Country: JP (occurrence: JP)
  Receive Date: 20181121
  Receipt Date: 20190311
  Transmission Date: 20190417
  Serious: No
  Sender: FDA-Public Use
  Company Number: JP-SHIRE-JP201736615

PATIENT

DRUGS (29)
  1. FOSRENOL [Suspect]
     Active Substance: LANTHANUM CARBONATE
     Dosage: 750 MG, UNK
     Route: 048
     Dates: start: 20161130, end: 20161213
  2. AMLODIPINE [Suspect]
     Active Substance: AMLODIPINE BESYLATE
     Indication: PRODUCT USED FOR UNKNOWN INDICATION
     Route: 048
  3. LECITHIN [Concomitant]
     Active Substance: LECITHIN
  4. SODIUM BICARBONATE. [Concomitant]
     Active Substance: SODIUM BICARBONATE
  5. LECICARBON [Concomitant]
     Active Substance: SODIUM BICARBONATE\SODIUM PHOSPHATE, MONOBASIC
     Indication: PRODUCT USED FOR UNKNOWN INDICATION
  6. 405 (LANTHANUM CARBONATE) [Suspect]
     Active Substance: LANTHANUM CARBONATE
     Dosage: 500 MG, UNK
     Route: 048
     Dates: start: 20101222
  7. 405 (LANTHANUM CARBONATE) [Suspect]
     Active Substance: LANTHANUM CARBONATE
     Dosage: 750MG, 1X/DAY:QD
     Route: 048
     Dates: start: 20190109
  8. MUCOSOLVAN [Concomitant]
     Active Substance: AMBROXOL HYDROCHLORIDE
     Indication: PRODUCT USED FOR UNKNOWN INDICATION
  9. PROTECADIN [Concomitant]
     Active Substance: LAFUTIDINE
     Indication: PRODUCT USED FOR UNKNOWN INDICATION
  10. PHOSBLOCK [Concomitant]
     Active Substance: FERRIC HYDROXIDE
     Indication: PRODUCT USED FOR UNKNOWN INDICATION
  11. 405 (LANTHANUM CARBONATE) [Suspect]
     Active Substance: LANTHANUM CARBONATE
     Dosage: 1250 MG, 1X/DAY:QD
     Route: 048
     Dates: start: 20170727, end: 20170829
  12. MUCOSTA [Concomitant]
     Active Substance: REBAMIPIDE
     Indication: PRODUCT USED FOR UNKNOWN INDICATION
  13. GLAKAY [Concomitant]
     Active Substance: MENATETRENONE
     Indication: PRODUCT USED FOR UNKNOWN INDICATION
  14. MAXACALCITOL [Concomitant]
     Active Substance: MAXACALCITOL
     Indication: PRODUCT USED FOR UNKNOWN INDICATION
  15. 405 (LANTHANUM CARBONATE) [Suspect]
     Active Substance: LANTHANUM CARBONATE
     Indication: HYPERPHOSPHATAEMIA
     Dosage: 750 MG, 1X/DAY:QD
     Route: 048
     Dates: start: 20100623, end: 20101221
  16. DIOVAN [Concomitant]
     Active Substance: VALSARTAN
     Indication: PRODUCT USED FOR UNKNOWN INDICATION
  17. DANTRON [Concomitant]
  18. FOSRENOL [Suspect]
     Active Substance: LANTHANUM CARBONATE
     Indication: HYPERPHOSPHATAEMIA
     Dosage: 500 MG, 1X/DAY:QD
     Route: 048
     Dates: start: 20160316, end: 20161129
  19. ADALAT [Suspect]
     Active Substance: NIFEDIPINE
     Indication: PRODUCT USED FOR UNKNOWN INDICATION
     Dosage: UNK MILLIGRAM
     Route: 048
  20. ZYLORIC [Concomitant]
     Active Substance: ALLOPURINOL
     Indication: PRODUCT USED FOR UNKNOWN INDICATION
  21. FOSRENOL [Suspect]
     Active Substance: LANTHANUM CARBONATE
     Dosage: 1000 MG, UNK
     Route: 048
     Dates: start: 20161214, end: 20170221
  22. FOSRENOL [Suspect]
     Active Substance: LANTHANUM CARBONATE
     Dosage: 1250 MG, UNK
     Route: 048
     Dates: start: 20170122
  23. MEIACT [Suspect]
     Active Substance: CEFDITOREN PIVOXIL
     Indication: PRODUCT USED FOR UNKNOWN INDICATION
     Route: 048
  24. PASTOMIN ORGANON [Concomitant]
     Indication: PRODUCT USED FOR UNKNOWN INDICATION
  25. CALBLOCK [Concomitant]
     Active Substance: AZELNIDIPINE
     Indication: PRODUCT USED FOR UNKNOWN INDICATION
  26. CALCIUM CARBONATE. [Concomitant]
     Active Substance: CALCIUM CARBONATE
     Indication: PRODUCT USED FOR UNKNOWN INDICATION
  27. PURSENNID [Concomitant]
     Active Substance: SENNOSIDES A AND B
     Indication: PRODUCT USED FOR UNKNOWN INDICATION
  28. ANESPAS [Concomitant]
     Indication: PRODUCT USED FOR UNKNOWN INDICATION
  29. OXAROL [Concomitant]
     Active Substance: MAXACALCITOL
     Indication: PRODUCT USED FOR UNKNOWN INDICATION

REACTIONS (7)
  - Colon adenoma [Recovered/Resolved]
  - Hypercalcaemia [Recovered/Resolved]
  - Atrial septal defect [Not Recovered/Not Resolved]
  - Gingival swelling [Recovered/Resolved]
  - Hyperparathyroidism secondary [Recovering/Resolving]
  - Splenitis [Recovered/Resolved]
  - Pyrexia [Recovered/Resolved]

NARRATIVE: CASE EVENT DATE: 20100927
